FAERS Safety Report 10968780 (Version 1)
Quarter: 2015Q1

REPORT INFORMATION
  Report Type: Spontaneous
  Country: FR (occurrence: FR)
  Receive Date: 20150331
  Receipt Date: 20150331
  Transmission Date: 20150721
  Serious: Yes (Hospitalization)
  Sender: FDA-Public Use
  Company Number: FR-ROCHE-1556604

PATIENT
  Age: 62 Year
  Sex: Female

DRUGS (10)
  1. DOLIPRANE [Concomitant]
     Active Substance: ACETAMINOPHEN
     Route: 048
     Dates: start: 20141218
  2. DELURSAN [Concomitant]
     Active Substance: URSODIOL
     Route: 048
  3. CORTANCYL [Concomitant]
     Active Substance: PREDNISONE
     Route: 048
  4. PERINDOPRIL [Concomitant]
     Active Substance: PERINDOPRIL
     Route: 048
  5. MABTHERA [Suspect]
     Active Substance: RITUXIMAB
     Indication: ANTISYNTHETASE SYNDROME
     Route: 041
  6. MONOPROST [Concomitant]
     Active Substance: LATANOPROST
     Route: 048
  7. AZARGA [Concomitant]
     Active Substance: BRINZOLAMIDE\TIMOLOL MALEATE
     Route: 047
  8. SOLU-MEDROL [Concomitant]
     Active Substance: METHYLPREDNISOLONE SODIUM SUCCINATE
     Route: 042
     Dates: start: 20141218
  9. LEVOTHYROX [Concomitant]
     Active Substance: LEVOTHYROXINE
     Route: 048
  10. CETIRIZINE [Concomitant]
     Active Substance: CETIRIZINE HYDROCHLORIDE
     Route: 048
     Dates: start: 20141218

REACTIONS (2)
  - Atrioventricular block complete [Not Recovered/Not Resolved]
  - Myocarditis [Recovering/Resolving]

NARRATIVE: CASE EVENT DATE: 20141215
